FAERS Safety Report 14674641 (Version 2)
Quarter: 2018Q2

REPORT INFORMATION
  Report Type: Spontaneous
  Country: US (occurrence: US)
  Receive Date: 20180323
  Receipt Date: 20180422
  Transmission Date: 20180711
  Serious: Yes (Death, Hospitalization, Other)
  Sender: FDA-Public Use
  Company Number: US-APOTEX-2018AP008811

PATIENT
  Age: 44 Year
  Sex: Male

DRUGS (1)
  1. ACETAMINOPHEN. [Suspect]
     Active Substance: ACETAMINOPHEN
     Indication: PRODUCT USED FOR UNKNOWN INDICATION
     Dosage: UNK
     Route: 065

REACTIONS (7)
  - Hyperkalaemia [Unknown]
  - Cerebral infarction [Unknown]
  - Acute hepatic failure [Fatal]
  - Acute kidney injury [Unknown]
  - Toxicity to various agents [Unknown]
  - Cardiac arrest [Fatal]
  - Metabolic acidosis [Unknown]
